FAERS Safety Report 24697389 (Version 1)
Quarter: 2024Q4

REPORT INFORMATION
  Report Type: Spontaneous
  Country: CN (occurrence: CN)
  Receive Date: 20241204
  Receipt Date: 20241204
  Transmission Date: 20250115
  Serious: Yes (Death, Life-Threatening, Hospitalization, Disabling, Other)
  Sender: JOHNSON AND JOHNSON
  Company Number: CN-JNJFOC-20241167838

PATIENT

DRUGS (1)
  1. SIMPONI [Suspect]
     Active Substance: GOLIMUMAB
     Indication: Product used for unknown indication
     Route: 058

REACTIONS (20)
  - Pneumonia [Fatal]
  - Lower respiratory tract infection [Fatal]
  - Urinary tract infection [Fatal]
  - Influenza [Fatal]
  - Infection [Fatal]
  - Nasopharyngitis [Fatal]
  - Cellulitis [Fatal]
  - Sinusitis [Fatal]
  - Bronchitis [Fatal]
  - Herpes zoster [Fatal]
  - Administration site infection [Fatal]
  - Flavivirus infection [Fatal]
  - Administration site haemorrhage [Fatal]
  - Zika virus infection [Fatal]
  - Dengue fever [Fatal]
  - Tuberculous pleurisy [Fatal]
  - Administration site pain [Fatal]
  - Borrelia infection [Fatal]
  - Chikungunya virus infection [Fatal]
  - Peritoneal tuberculosis [Fatal]
